FAERS Safety Report 19233311 (Version 1)
Quarter: 2021Q2

REPORT INFORMATION
  Report Type: Spontaneous
  Country: SA (occurrence: SA)
  Receive Date: 20210507
  Receipt Date: 20210507
  Transmission Date: 20210717
  Serious: Yes (Hospitalization)
  Sender: FDA-Public Use
  Company Number: SA-ASTRAZENECA-2021A385279

PATIENT
  Sex: Female

DRUGS (1)
  1. XIGDUO XR [Suspect]
     Active Substance: DAPAGLIFLOZIN PROPANEDIOL\METFORMIN HYDROCHLORIDE
     Dosage: 10 MG DAPAGLIFLOZIN AND 1000 MG OF METFORMIN HYDROCHLORIDE ONCE/SINGLE ADMINISTRATION10.0MG ONC...
     Route: 048

REACTIONS (1)
  - Gastritis [Unknown]
